FAERS Safety Report 18296462 (Version 2)
Quarter: 2020Q4

REPORT INFORMATION
  Report Type: Report from Study
  Country: KR (occurrence: KR)
  Receive Date: 20200922
  Receipt Date: 20201028
  Transmission Date: 20210113
  Serious: Yes (Death)
  Sender: FDA-Public Use
  Company Number: KR-SAMSUNG BIOEPIS-SB-2020-28854

PATIENT
  Age: 78 Year
  Sex: Female
  Weight: 57.3 kg

DRUGS (9)
  1. DOCETAXEL. [Suspect]
     Active Substance: DOCETAXEL
     Route: 042
     Dates: start: 20191203, end: 20191203
  2. DOCETAXEL. [Suspect]
     Active Substance: DOCETAXEL
     Indication: PRODUCT USED FOR UNKNOWN INDICATION
     Route: 042
     Dates: start: 20191022, end: 20191112
  3. DIOVAN [Concomitant]
     Active Substance: VALSARTAN
     Indication: PRODUCT USED FOR UNKNOWN INDICATION
     Route: 048
     Dates: start: 20191022
  4. SAMFENET [Suspect]
     Active Substance: TRASTUZUMAB
     Route: 065
     Dates: start: 20191112, end: 20191112
  5. PERTUZUMAB. [Concomitant]
     Active Substance: PERTUZUMAB
     Indication: PRODUCT USED FOR UNKNOWN INDICATION
     Route: 042
     Dates: start: 20191022, end: 20191022
  6. PERTUZUMAB. [Concomitant]
     Active Substance: PERTUZUMAB
     Route: 042
     Dates: start: 20191112
  7. GABAPENTIN. [Concomitant]
     Active Substance: GABAPENTIN
     Indication: PRODUCT USED FOR UNKNOWN INDICATION
     Route: 048
     Dates: start: 20191022
  8. SAMFENET [Suspect]
     Active Substance: TRASTUZUMAB
     Indication: PRODUCT USED FOR UNKNOWN INDICATION
     Route: 065
     Dates: start: 20191022, end: 20191022
  9. SAMFENET [Suspect]
     Active Substance: TRASTUZUMAB
     Route: 065
     Dates: start: 20191203, end: 20191203

REACTIONS (2)
  - Septic shock [Fatal]
  - Pyelonephritis acute [Fatal]

NARRATIVE: CASE EVENT DATE: 20191222
